FAERS Safety Report 17844803 (Version 1)
Quarter: 2020Q2

REPORT INFORMATION
  Report Type: Spontaneous
  Country: US (occurrence: US)
  Receive Date: 20200601
  Receipt Date: 20200601
  Transmission Date: 20200714
  Serious: No
  Sender: FDA-Public Use
  Company Number: NVSC2020US151092

PATIENT
  Age: 70 Year
  Sex: Male

DRUGS (1)
  1. VOLTAREN [Suspect]
     Active Substance: DICLOFENAC SODIUM
     Indication: ARTHRITIS
     Dosage: UNK UNK, TID
     Route: 065

REACTIONS (5)
  - Hypersensitivity [Recovering/Resolving]
  - Application site vesicles [Recovering/Resolving]
  - Application site warmth [Recovering/Resolving]
  - Application site erythema [Recovering/Resolving]
  - Product administered at inappropriate site [Recovering/Resolving]
